FAERS Safety Report 19437996 (Version 3)
Quarter: 2022Q4

REPORT INFORMATION
  Report Type: Spontaneous
  Country: UZ (occurrence: None)
  Receive Date: 20210618
  Receipt Date: 20221004
  Transmission Date: 20230112
  Serious: Yes (Other)
  Sender: FDA-Public Use
  Company Number: UZ-ROCHE-2851674

PATIENT
  Age: 15 Year
  Sex: Female

DRUGS (1)
  1. ACTEMRA [Suspect]
     Active Substance: TOCILIZUMAB
     Indication: Juvenile idiopathic arthritis
     Dosage: 200MG/10 ML, 1ML/ PER HOUR
     Route: 042
     Dates: start: 20210601, end: 20210615

REACTIONS (4)
  - Angioedema [Recovered/Resolved]
  - Rash erythematous [Recovered/Resolved]
  - Hypertension [Recovered/Resolved]
  - Heart rate increased [Recovered/Resolved]

NARRATIVE: CASE EVENT DATE: 20210615
